FAERS Safety Report 12392461 (Version 1)
Quarter: 2016Q2

REPORT INFORMATION
  Report Type: Spontaneous
  Country: US (occurrence: US)
  Receive Date: 20160523
  Receipt Date: 20160523
  Transmission Date: 20160815
  Serious: Yes (Hospitalization)
  Sender: FDA-Public Use
  Company Number: US-GLENMARK PHARMACEUTICALS INC, USA.-2015GMK020112

PATIENT

DRUGS (2)
  1. MOEXIPRIL TABLETS [Suspect]
     Active Substance: MOEXIPRIL HYDROCHLORIDE
     Dosage: 15 MG, QD
     Route: 048
     Dates: start: 201510, end: 201510
  2. MOEXIPRIL TABLETS [Suspect]
     Active Substance: MOEXIPRIL HYDROCHLORIDE
     Indication: HYPERTENSION
     Dosage: 15 MG, QD
     Route: 048
     Dates: start: 2015, end: 201510

REACTIONS (2)
  - Drug ineffective [Unknown]
  - Product substitution issue [Unknown]

NARRATIVE: CASE EVENT DATE: 201510
